FAERS Safety Report 8963136 (Version 3)
Quarter: 2013Q1

REPORT INFORMATION
  Report Type: Spontaneous
  Country: US (occurrence: US)
  Receive Date: 20121214
  Receipt Date: 20130218
  Transmission Date: 20140127
  Serious: No
  Sender: FDA-Public Use
  Company Number: US-PFIZER INC-2012311920

PATIENT
  Age: 78 Year
  Sex: Female
  Weight: 58.96 kg

DRUGS (19)
  1. VFEND [Suspect]
     Indication: ASPERGILLUS INFECTION
     Dosage: 200 MG, 2X/DAY
     Route: 048
     Dates: start: 201204, end: 2012
  2. VFEND [Suspect]
     Dosage: UNK
     Dates: start: 201205, end: 2012
  3. SPIRIVA [Concomitant]
     Dosage: UNK
  4. VENTOLIN [Concomitant]
     Dosage: UNK
  5. METOPROLOL [Concomitant]
     Dosage: UNK
  6. SIMVASTATIN [Concomitant]
     Dosage: UNK
  7. PROPRANOLOL [Concomitant]
     Dosage: UNK
  8. ZETIA [Concomitant]
     Dosage: UNK
  9. ALPRAZOLAM [Concomitant]
     Dosage: UNK
  10. MELOXICAM [Concomitant]
     Dosage: UNK
  11. NAMENDA [Concomitant]
     Dosage: UNK
  12. DONEPEZIL [Concomitant]
     Dosage: UNK
  13. ETHAMBUTOL [Concomitant]
     Dosage: UNK
  14. AZITHROMYCIN [Concomitant]
     Dosage: UNK
  15. RIFAMPIN [Concomitant]
     Dosage: UNK
  16. LATANOPROST [Concomitant]
     Dosage: UNK
  17. OMEPRAZOLE [Concomitant]
     Dosage: UNK
  18. ESCITALOPRAM [Concomitant]
     Dosage: UNK
  19. MONTELUKAST [Concomitant]
     Dosage: UNK

REACTIONS (1)
  - Lung disorder [Unknown]
